FAERS Safety Report 6477577-8 (Version None)
Quarter: 2009Q4

REPORT INFORMATION
  Report Type: 
  Country: None (occurrence: None)
  Receive Date: 20091207
  Receipt Date: 20091202
  Transmission Date: 20100525
  Serious: Yes (Hospitalization)
  Sender: FDA-Public Use
  Company Number: US-ROXANE LABORATORIES, INC.-2009-RO-01208RO

PATIENT
  Age: 30 Year
  Sex: Male

DRUGS (2)
  1. MYCOPHENOLATE MOFETIL [Suspect]
     Indication: PROPHYLAXIS AGAINST GRAFT VERSUS HOST DISEASE
  2. PREDNISONE [Suspect]

REACTIONS (4)
  - COLITIS [None]
  - DEHYDRATION [None]
  - RENAL FAILURE ACUTE [None]
  - WEIGHT DECREASED [None]
